FAERS Safety Report 5531598-8 (Version None)
Quarter: 2007Q4

REPORT INFORMATION
  Report Type: 
  Country: None (occurrence: None)
  Receive Date: 20071203
  Receipt Date: 20071126
  Transmission Date: 20080405
  Serious: Yes (Other)
  Sender: FDA-Public Use
  Company Number: PHEH2007US10265

PATIENT
  Age: 80 Year
  Sex: Female

DRUGS (3)
  1. LOTREL [Suspect]
     Indication: HYPERTENSION
     Dosage: 5/40 MG, QD
     Route: 048
     Dates: start: 20060801, end: 20070716
  2. NEXIUM [Suspect]
  3. ETODOLAC [Suspect]

REACTIONS (2)
  - HEPATOCELLULAR DAMAGE [None]
  - OEDEMA [None]
